FAERS Safety Report 15872260 (Version 1)
Quarter: 2019Q1

REPORT INFORMATION
  Report Type: Other
  Country: US (occurrence: US)
  Receive Date: 20190126
  Receipt Date: 20190126
  Transmission Date: 20190417
  Serious: Yes (Hospitalization)
  Sender: FDA-Public Use
  Company Number: US-ACORDA-ACO_147909_2018

PATIENT
  Age: 61 Year
  Sex: Female

DRUGS (3)
  1. AMPYRA [Suspect]
     Active Substance: DALFAMPRIDINE
     Indication: MULTIPLE SCLEROSIS
     Dosage: 10 MG,QD
     Route: 048
     Dates: start: 201803, end: 201805
  2. AMPYRA [Suspect]
     Active Substance: DALFAMPRIDINE
     Indication: MUSCLE SPASMS
  3. AMPYRA [Suspect]
     Active Substance: DALFAMPRIDINE
     Indication: GAIT DISTURBANCE
     Dosage: 10 MG, BID
     Route: 048
     Dates: start: 201512, end: 201801

REACTIONS (8)
  - Drug ineffective [Unknown]
  - Fall [Unknown]
  - Therapy cessation [Unknown]
  - Inappropriate schedule of product administration [Unknown]
  - Gait disturbance [Recovering/Resolving]
  - Condition aggravated [Recovering/Resolving]
  - Muscle spasms [Not Recovered/Not Resolved]
  - Product use in unapproved indication [Unknown]

NARRATIVE: CASE EVENT DATE: 201801
